FAERS Safety Report 9542362 (Version 1)
Quarter: 2013Q3

REPORT INFORMATION
  Report Type: Spontaneous
  Country: IE (occurrence: None)
  Receive Date: 20130918
  Receipt Date: 20130918
  Transmission Date: 20140515
  Serious: Yes (Death, Hospitalization)
  Sender: FDA-Public Use
  Company Number: FK201304244

PATIENT
  Age: 72 Year
  Sex: Male

DRUGS (2)
  1. METHOTREXATE [Suspect]
     Indication: RHEUMATOID ARTHRITIS
     Route: 048
  2. DEXAMETHASONE [Suspect]
     Indication: SPINAL CORD COMPRESSION
     Route: 042

REACTIONS (8)
  - Hypoxia [None]
  - Cardiac failure [None]
  - Necrotising fasciitis [None]
  - Urosepsis [None]
  - Joint swelling [None]
  - Erythema [None]
  - Cellulitis [None]
  - Leg amputation [None]
